FAERS Safety Report 6021950-9 (Version None)
Quarter: 2008Q4

REPORT INFORMATION
  Report Type: 
  Country: None (occurrence: None)
  Receive Date: 20081229
  Receipt Date: 20081223
  Transmission Date: 20090506
  Serious: Yes (Death)
  Sender: FDA-Public Use
  Company Number: US-ASTRAZENECA-2008AC03402

PATIENT
  Age: 50 Year
  Sex: Male

DRUGS (9)
  1. METOPROLOL [Suspect]
     Route: 048
  2. LISINOPRIL [Suspect]
     Route: 048
  3. FEXOFENADINE HCL AND PSEUDOEPHEDRINE HCL [Suspect]
     Route: 048
  4. CLOPIDOGREL [Suspect]
     Route: 048
  5. ALLOPURINOL [Suspect]
     Route: 048
  6. IBUPROFEN TABLETS [Suspect]
     Route: 048
  7. NAPROXEN [Suspect]
     Route: 048
  8. MELOXICAM [Suspect]
     Route: 048
  9. ATORVASTATIN CALCIUM [Suspect]
     Route: 048

REACTIONS (1)
  - COMPLETED SUICIDE [None]
